FAERS Safety Report 4413221-9 (Version None)
Quarter: 2004Q3

REPORT INFORMATION
  Report Type: 
  Country: None (occurrence: None)
  Receive Date: 20040730
  Receipt Date: 20040730
  Transmission Date: 20050211
  Serious: Yes (Death)
  Sender: FDA-Public Use
  Company Number: None

PATIENT
  Age: 62 Year
  Sex: Female

DRUGS (1)
  1. ATIVAN [Suspect]
     Indication: ANXIETY
     Dosage: 4 MG IV
     Route: 042
     Dates: start: 20040623

REACTIONS (6)
  - COMA [None]
  - DYSPNOEA [None]
  - INSOMNIA [None]
  - MEDICATION ERROR [None]
  - MIOSIS [None]
  - PLEURAL EFFUSION [None]
